FAERS Safety Report 4377625-5 (Version None)
Quarter: 2004Q2

REPORT INFORMATION
  Report Type: 
  Country: None (occurrence: None)
  Receive Date: 20040601
  Receipt Date: 20040210
  Transmission Date: 20050107
  Serious: No
  Sender: FDA-Public Use
  Company Number: WAES 0401USA01497

PATIENT
  Sex: Female
  Weight: 67.1324 kg

DRUGS (7)
  1. ZETIA [Suspect]
     Indication: HYPERTRIGLYCERIDAEMIA
     Dosage: 10 MG DAILY; PO
     Route: 048
     Dates: start: 20040113, end: 20040120
  2. AZOPT DROPS [Concomitant]
  3. MULTIVITAMIN [Concomitant]
  4. DIOVAN HCT [Concomitant]
  5. TRAVATAN [Concomitant]
  6. CALCIUM (UNSPECIFIED) (+) VITAMI [Concomitant]
  7. ESTRADIOL [Concomitant]

REACTIONS (4)
  - ABDOMINAL DISTENSION [None]
  - ABDOMINAL PAIN [None]
  - ABDOMINAL PAIN UPPER [None]
  - FLATULENCE [None]
